FAERS Safety Report 9460118 (Version 1)
Quarter: 2013Q3

REPORT INFORMATION
  Report Type: Spontaneous
  Country: AU (occurrence: AU)
  Receive Date: 20130815
  Receipt Date: 20130815
  Transmission Date: 20140515
  Serious: Yes (Other)
  Sender: FDA-Public Use
  Company Number: AU-PFIZER INC-2013233507

PATIENT
  Age: 69 Year
  Sex: Female

DRUGS (10)
  1. AZITHROMYCIN [Suspect]
     Dosage: 500 MG, DAILY
     Route: 042
     Dates: start: 20050925
  2. CEFTRIAXONE SODIUM [Suspect]
     Dosage: 1 G, DAILY
     Route: 042
     Dates: start: 20050922, end: 20050925
  3. VANCOMYCIN HCL [Suspect]
     Dosage: 1 G, 1X/DAY
     Route: 042
     Dates: start: 20050926, end: 20050929
  4. ETHACRYNIC ACID [Suspect]
     Dosage: 100 MG, SINGLE
     Route: 042
     Dates: start: 20050926, end: 20050926
  5. RULIDE [Suspect]
     Dosage: 300 MG, DAILY
     Route: 048
     Dates: start: 20050922, end: 20050925
  6. AMIODARONE [Concomitant]
     Dosage: UNK
  7. RANI 2 [Concomitant]
     Dosage: UNK
  8. SPIRACTIN [Concomitant]
     Dosage: UNK
  9. TAZOCIN [Concomitant]
     Dosage: UNK
  10. WARFARIN SODIUM [Concomitant]
     Dosage: UNK

REACTIONS (3)
  - Renal failure acute [Recovered/Resolved]
  - Deafness [Recovered/Resolved]
  - Tinnitus [Recovered/Resolved]
